FAERS Safety Report 5324498-X (Version None)
Quarter: 2007Q2

REPORT INFORMATION
  Report Type: 
  Country: None (occurrence: None)
  Receive Date: 20070514
  Receipt Date: 20070504
  Transmission Date: 20071010
  Serious: Yes (Hospitalization)
  Sender: FDA-Public Use
  Company Number: FR-PFIZER INC-2007017191

PATIENT
  Age: 60 Year
  Sex: Male

DRUGS (9)
  1. ALDACTONE [Suspect]
     Dosage: DAILY DOSE:25MG-FREQ:DAILY
     Route: 048
     Dates: start: 20070121, end: 20070126
  2. OFLOCET [Suspect]
     Route: 048
     Dates: start: 20070120, end: 20070125
  3. TRIATEC [Suspect]
     Route: 048
  4. AMIODARONE HCL [Suspect]
     Dosage: TEXT:6 DF-FREQ:DAILY
     Route: 048
  5. AUGMENTIN '125' [Suspect]
     Route: 042
  6. ELISOR [Suspect]
     Route: 048
  7. SINTROM [Concomitant]
  8. LASIX [Concomitant]
  9. DIFFU K [Concomitant]

REACTIONS (2)
  - ALANINE AMINOTRANSFERASE INCREASED [None]
  - BLOOD CREATININE INCREASED [None]
